FAERS Safety Report 5633168-X (Version None)
Quarter: 2008Q1

REPORT INFORMATION
  Report Type: 
  Country: None (occurrence: None)
  Receive Date: 20080221
  Receipt Date: 20080213
  Transmission Date: 20080703
  Serious: Yes (Disabling, Other)
  Sender: FDA-Public Use
  Company Number: BR-AVENTIS-200811540GDDC

PATIENT
  Age: 62 Year
  Sex: Male
  Weight: 76.6 kg

DRUGS (7)
  1. LANTUS [Suspect]
     Route: 058
     Dates: start: 20070901, end: 20080201
  2. LANTUS [Suspect]
     Route: 058
     Dates: start: 20080202, end: 20080213
  3. LANTUS [Suspect]
     Route: 058
     Dates: start: 20080214
  4. GLUCOFORMIN                        /00082701/ [Concomitant]
  5. SIMVASTATIN [Concomitant]
     Route: 048
     Dates: start: 20060101
  6. CEBRALAT [Concomitant]
     Route: 048
     Dates: start: 20060101
  7. DIOVAN [Concomitant]
     Indication: BLOOD PRESSURE
     Route: 048
     Dates: start: 20060101

REACTIONS (5)
  - DRUG INEFFECTIVE [None]
  - FATIGUE [None]
  - HYPERGLYCAEMIA [None]
  - HYPOTENSION [None]
  - PHARMACEUTICAL PRODUCT COMPLAINT [None]
